FAERS Safety Report 11215356 (Version 1)
Quarter: 2015Q2

REPORT INFORMATION
  Report Type: Spontaneous
  Country: US (occurrence: None)
  Receive Date: 20150623
  Receipt Date: 20150623
  Transmission Date: 20150821
  Serious: Yes (Death, Hospitalization)
  Sender: FDA-Public Use
  Company Number: None

PATIENT
  Age: 87 Year
  Sex: Female

DRUGS (1)
  1. BRILINTA [Suspect]
     Active Substance: TICAGRELOR
     Indication: CORONARY ARTERIAL STENT INSERTION

REACTIONS (4)
  - Intracranial pressure increased [None]
  - Fall [None]
  - Haemorrhage intracranial [None]
  - Head injury [None]

NARRATIVE: CASE EVENT DATE: 20150326
